FAERS Safety Report 5417093-5 (Version None)
Quarter: 2007Q3

REPORT INFORMATION
  Report Type: 
  Country: None (occurrence: None)
  Receive Date: 20070718
  Receipt Date: 20070316
  Transmission Date: 20080115
  Serious: Yes (Other)
  Sender: FDA-Public Use
  Company Number: 2007021107

PATIENT
  Sex: Male

DRUGS (2)
  1. CELEBREX [Suspect]
     Dosage: ORAL
     Route: 048
  2. ACETYLSALICYLIC ACID SRT [Suspect]
     Dosage: ORAL
     Route: 048

REACTIONS (1)
  - FAECES DISCOLOURED [None]
